FAERS Safety Report 4486699-2 (Version None)
Quarter: 2004Q4

REPORT INFORMATION
  Report Type: 
  Country: None (occurrence: None)
  Receive Date: 20041021
  Receipt Date: 20041011
  Transmission Date: 20050328
  Serious: Yes (Death, Hospitalization)
  Sender: FDA-Public Use
  Company Number: 2004238472US

PATIENT
  Age: 73 Year
  Sex: Female
  Weight: 54.4 kg

DRUGS (1)
  1. CELEBREX [Suspect]
     Indication: ARTHRITIS
     Dosage: 200MG, BID AS NEEDED, ORAL
     Route: 048

REACTIONS (2)
  - CEREBROVASCULAR ACCIDENT [None]
  - HEADACHE [None]
